FAERS Safety Report 12738654 (Version 2)
Quarter: 2016Q3

REPORT INFORMATION
  Report Type: Spontaneous
  Country: US (occurrence: US)
  Receive Date: 20160913
  Receipt Date: 20160919
  Transmission Date: 20161109
  Serious: Yes (Hospitalization)
  Sender: FDA-Public Use
  Company Number: US-PFIZER INC-2016422324

PATIENT
  Age: 85 Year
  Sex: Female
  Weight: 68 kg

DRUGS (2)
  1. SUTENT [Suspect]
     Active Substance: SUNITINIB MALATE
     Indication: GASTROINTESTINAL STROMAL TUMOUR
     Dosage: 12.5 MG, 2X/DAY
     Route: 048
     Dates: end: 201607
  2. ADVIL [Concomitant]
     Active Substance: IBUPROFEN
     Indication: PAIN
     Dosage: 2 DF, AS NEEDED BY MOUTH; 300MG TWO BY MOUTH AS NEEDED
     Route: 048

REACTIONS (3)
  - Musculoskeletal discomfort [Unknown]
  - Thrombosis [Unknown]
  - Malaise [Unknown]

NARRATIVE: CASE EVENT DATE: 2016
